FAERS Safety Report 21148968 (Version 1)
Quarter: 2022Q3

REPORT INFORMATION
  Report Type: Spontaneous
  Country: GB (occurrence: GB)
  Receive Date: 20220729
  Receipt Date: 20220729
  Transmission Date: 20221027
  Serious: Yes (Life-Threatening, Disabling, Other)
  Sender: FDA-Public Use
  Company Number: GB-MHRA-MED-202207251348535800-LFPRJ

PATIENT
  Age: 33 Year
  Sex: Female
  Weight: 65 kg

DRUGS (1)
  1. KYLEENA [Suspect]
     Active Substance: LEVONORGESTREL
     Dosage: 17.5?G/DAY
     Route: 015
     Dates: start: 20220620

REACTIONS (5)
  - Anxiety [Not Recovered/Not Resolved]
  - Panic attack [None]
  - Hyperventilation [None]
  - Loss of consciousness [None]
  - Complication of device insertion [None]

NARRATIVE: CASE EVENT DATE: 20220620
